FAERS Safety Report 4575949-X (Version None)
Quarter: 2005Q1

REPORT INFORMATION
  Report Type: 
  Country: None (occurrence: None)
  Receive Date: 20050209
  Receipt Date: 20050202
  Transmission Date: 20050727
  Serious: Yes (Life-Threatening, Hospitalization)
  Sender: FDA-Public Use
  Company Number: US-MERCK-0502USA00246

PATIENT
  Age: 44 Year
  Sex: Female

DRUGS (2)
  1. VIOXX [Suspect]
     Indication: ARTHRITIS
     Route: 048
     Dates: start: 20020101, end: 20030101
  2. ALTACE [Concomitant]
     Route: 065

REACTIONS (4)
  - ADVERSE EVENT [None]
  - BRADYCARDIA [None]
  - DIZZINESS [None]
  - TACHYCARDIA [None]
